FAERS Safety Report 7740282-1 (Version None)
Quarter: 2011Q3

REPORT INFORMATION
  Report Type: 
  Country: None (occurrence: None)
  Receive Date: 20110909
  Receipt Date: 20110826
  Transmission Date: 20111222
  Serious: Yes (Death, Hospitalization)
  Sender: FDA-Public Use
  Company Number: NL-ROCHE-801413

PATIENT
  Sex: Male

DRUGS (8)
  1. BEVACIZUMAB [Suspect]
     Indication: COLORECTAL CANCER
     Route: 042
     Dates: start: 20100122
  2. FUROSEMIDE [Concomitant]
  3. PANTOPRAZOLE [Concomitant]
  4. CAPECITABINE [Suspect]
     Indication: COLORECTAL CANCER
     Route: 048
     Dates: start: 20100122
  5. OXALIPLATIN [Suspect]
     Indication: COLORECTAL CANCER
     Route: 042
     Dates: start: 20100122
  6. METFORMIN [Concomitant]
  7. SPIRONOLACTONE [Concomitant]
  8. LISINOPRIL [Concomitant]

REACTIONS (1)
  - RENAL FAILURE ACUTE [None]
